FAERS Safety Report 25211131 (Version 1)
Quarter: 2025Q2

REPORT INFORMATION
  Report Type: Report from Study
  Country: US (occurrence: US)
  Receive Date: 20250417
  Receipt Date: 20250417
  Transmission Date: 20250716
  Serious: Yes (Death, Other)
  Sender: JAZZ
  Company Number: US-JAZZ PHARMACEUTICALS-2025-US-009719

PATIENT
  Sex: Male

DRUGS (1)
  1. EPIDIOLEX [Suspect]
     Active Substance: CANNABIDIOL
     Indication: Epilepsy
     Dosage: 9.5 MILLILITER, BID (G TUBE)
     Dates: start: 201906

REACTIONS (3)
  - Norovirus infection [Fatal]
  - Brain oedema [Fatal]
  - Hyperammonaemia [Fatal]
